FAERS Safety Report 10050179 (Version 2)
Quarter: 2014Q2

REPORT INFORMATION
  Report Type: Spontaneous
  Country: US (occurrence: US)
  Receive Date: 20140401
  Receipt Date: 20140401
  Transmission Date: 20141212
  Serious: Yes (Hospitalization, Other)
  Sender: FDA-Public Use
  Company Number: US-009507513-1403USA014427

PATIENT
  Age: 69 Year
  Sex: Male

DRUGS (6)
  1. SINGULAIR [Suspect]
     Indication: CHRONIC OBSTRUCTIVE PULMONARY DISEASE
     Route: 048
  2. TAVANIC [Suspect]
     Route: 048
  3. MARCOUMAR [Concomitant]
  4. ISOPTIN [Concomitant]
  5. TORSEMIDE [Concomitant]
     Route: 048
  6. SYMBICORT [Concomitant]
     Route: 055

REACTIONS (2)
  - Aplasia pure red cell [Unknown]
  - Thrombocytopenia [Unknown]
